FAERS Safety Report 18346825 (Version 5)
Quarter: 2021Q1

REPORT INFORMATION
  Report Type: Spontaneous
  Country: PT (occurrence: PT)
  Receive Date: 20201006
  Receipt Date: 20210323
  Transmission Date: 20210419
  Serious: Yes (Other)
  Sender: FDA-Public Use
  Company Number: PT-CELLTRION INC.-2020PT028456

PATIENT

DRUGS (3)
  1. PREDNISOLONE. [Concomitant]
     Active Substance: PREDNISOLONE
     Dosage: UP TO 1.5 MG/KG, DAILY
  2. PREDNISOLONE. [Suspect]
     Active Substance: PREDNISOLONE
     Indication: PRODUCT USED FOR UNKNOWN INDICATION
     Dosage: UP TO 1.5 MG/KG/DAY FOR 4 MONTHS, AS CORTICOTHERAPY (CCT)
  3. RITUXIMAB (UNKNOWN) [Suspect]
     Active Substance: RITUXIMAB
     Indication: IMMUNOSUPPRESSION
     Dosage: 375 MG/M2 FOR 4 DOSES / 375 MG/M2

REACTIONS (5)
  - Kaposi^s sarcoma [Recovered/Resolved]
  - Off label use [Unknown]
  - Haemolysis [Unknown]
  - Disease recurrence [Unknown]
  - Diverticulum intestinal [Unknown]
